FAERS Safety Report 7512143-4 (Version None)
Quarter: 2011Q2

REPORT INFORMATION
  Report Type: 
  Country: None (occurrence: None)
  Receive Date: 20110520
  Receipt Date: 20110503
  Transmission Date: 20111010
  Serious: Yes (Other)
  Sender: FDA-Public Use
  Company Number: DKLU1070661

PATIENT
  Age: 6 Month
  Sex: Female

DRUGS (7)
  1. CLOTRIMAZOLE [Concomitant]
  2. NYSTATIN [Concomitant]
  3. ADRENOCORTICOTROP-HIC HORMONE (CORTICOTROPIN) [Concomitant]
  4. CHLORAL HYDRATE (CHLORAL HYDRATE) [Concomitant]
  5. TRIMETHOPRIM [Concomitant]
  6. ALL OTHER THERAPEUTIC PRODUCTS (ALL OTHER THERAPEUTIC PRODUCTS) [Concomitant]
  7. SABRIL [Suspect]
     Indication: INFANTILE SPASMS
     Dosage: 100 MG MILLIGRAM(S), ORAL
     Route: 048
     Dates: start: 20110325, end: 20110408

REACTIONS (6)
  - SOMNOLENCE [None]
  - MOUTH ULCERATION [None]
  - CONDITION AGGRAVATED [None]
  - CONVULSION [None]
  - RASH MORBILLIFORM [None]
  - CHAPPED LIPS [None]
